FAERS Safety Report 4320593-2 (Version None)
Quarter: 2004Q1

REPORT INFORMATION
  Report Type: 
  Country: None (occurrence: None)
  Receive Date: 20040319
  Receipt Date: 20040319
  Transmission Date: 20041129
  Serious: Yes (Other)
  Sender: FDA-Public Use
  Company Number: None

PATIENT
  Sex: Male
  Weight: 117.9 kg

DRUGS (9)
  1. GAMMAGARD S/D [Suspect]
     Indication: CHRONIC INFLAMMATORY DEMYELINATING POLYRADICULONEUROPATHY
     Dosage: 0.4 GM/KG EVERY 3 WE PARENTERAL
     Route: 051
     Dates: start: 20040113, end: 20040113
  2. GAMMAGARD S/D [Suspect]
  3. ACETAMINOPHEN [Concomitant]
  4. HEPARIN [Concomitant]
  5. NS FLUSHES [Concomitant]
  6. COUMADIN [Concomitant]
  7. ATENOLOL [Concomitant]
  8. HYDROCHLOROTHIAZIDE [Concomitant]
  9. IMMUNE GLOBULIN INTRAVENOUS (HUMAN) [Concomitant]

REACTIONS (3)
  - BLINDNESS TRANSIENT [None]
  - ORTHOSTATIC HYPOTENSION [None]
  - VISION BLURRED [None]
